FAERS Safety Report 20990770 (Version 1)
Quarter: 2022Q2

REPORT INFORMATION
  Report Type: Spontaneous
  Country: GB (occurrence: GB)
  Receive Date: 20220622
  Receipt Date: 20220622
  Transmission Date: 20220720
  Serious: Yes (Other)
  Sender: FDA-Public Use
  Company Number: GB-UCBSA-2022034678

PATIENT
  Sex: Male

DRUGS (3)
  1. LACOSAMIDE [Suspect]
     Active Substance: LACOSAMIDE
     Indication: Epilepsy
     Dosage: UNK
  2. BRIVARACETAM [Suspect]
     Active Substance: BRIVARACETAM
     Indication: Epilepsy
     Dosage: UNK
     Dates: start: 2020
  3. PARALDEHYDE [Concomitant]
     Active Substance: PARALDEHYDE
     Indication: Apnoea

REACTIONS (2)
  - Epilepsy [Recovering/Resolving]
  - Aggression [Unknown]
